FAERS Safety Report 13685454 (Version 1)
Quarter: 2017Q2

REPORT INFORMATION
  Report Type: Spontaneous
  Country: US (occurrence: US)
  Receive Date: 20170623
  Receipt Date: 20170623
  Transmission Date: 20170830
  Serious: Yes (Other)
  Sender: FDA-Public Use
  Company Number: US-BAYER-2017-114256

PATIENT
  Sex: Female

DRUGS (1)
  1. COPPERTONE UNKNOWN (AVOBENZONE\HOMOSALATE\OCTISALATE) [Suspect]
     Active Substance: AVOBENZONE\HOMOSALATE\OCTISALATE
     Indication: PROPHYLAXIS
     Dosage: 1 DF, UNK
     Route: 061

REACTIONS (3)
  - Sunburn [Unknown]
  - Loss of consciousness [Unknown]
  - Blister [Unknown]
